FAERS Safety Report 17603831 (Version 3)
Quarter: 2020Q3

REPORT INFORMATION
  Report Type: Spontaneous
  Country: JP (occurrence: JP)
  Receive Date: 20200331
  Receipt Date: 20200722
  Transmission Date: 20201102
  Serious: Yes (Death, Other)
  Sender: FDA-Public Use
  Company Number: JP-ROCHE-2571607

PATIENT
  Age: 78 Year
  Sex: Male
  Weight: 66 kg

DRUGS (6)
  1. ETOPOSIDE. [Suspect]
     Active Substance: ETOPOSIDE
     Indication: SMALL CELL LUNG CANCER EXTENSIVE STAGE
     Route: 041
     Dates: start: 20191009, end: 20200214
  2. CARBOPLATIN. [Suspect]
     Active Substance: CARBOPLATIN
     Indication: SMALL CELL LUNG CANCER EXTENSIVE STAGE
     Dosage: DOSAGE IS UNCERTAIN.
     Route: 041
     Dates: start: 20191009, end: 20200212
  3. TECENTRIQ [Suspect]
     Active Substance: ATEZOLIZUMAB
     Indication: SMALL CELL LUNG CANCER EXTENSIVE STAGE
     Route: 041
     Dates: start: 20191009
  4. G?LASTA [Concomitant]
     Active Substance: PEGFILGRASTIM
     Dosage: DOSAGE IS UNCERTAIN.
     Route: 065
     Dates: start: 20200121, end: 20200121
  5. G?LASTA [Concomitant]
     Active Substance: PEGFILGRASTIM
     Dosage: DOSAGE IS UNCERTAIN.
     Route: 065
     Dates: start: 20191113, end: 20191113
  6. G?LASTA [Concomitant]
     Active Substance: PEGFILGRASTIM
     Dosage: DOSAGE IS UNCERTAIN.
     Route: 065
     Dates: start: 20200212, end: 20200212

REACTIONS (6)
  - Neutrophil count decreased [Recovering/Resolving]
  - Multiple organ dysfunction syndrome [Fatal]
  - Metastases to adrenals [Unknown]
  - Hypothyroidism [Recovered/Resolved]
  - Pericarditis malignant [Unknown]
  - Spinal compression fracture [Unknown]

NARRATIVE: CASE EVENT DATE: 20191023
